FAERS Safety Report 7389515-4 (Version None)
Quarter: 2011Q2

REPORT INFORMATION
  Report Type: 
  Country: None (occurrence: None)
  Receive Date: 20110401
  Receipt Date: 20110322
  Transmission Date: 20111010
  Serious: Yes (Other)
  Sender: FDA-Public Use
  Company Number: PHHY2011US23080

PATIENT
  Sex: Female

DRUGS (8)
  1. LOTREL [Suspect]
     Dosage: 5/10 MG, QD
  2. CLONAZEPAM [Concomitant]
     Dosage: 0.5 MG, HALF TABLET
  3. HYDROCHLOROTHIAZIDE [Concomitant]
     Dosage: AS NEEDED
  4. AMBIEN [Concomitant]
     Dosage: 12.5 MG, UNK
  5. VITAMIN D [Concomitant]
  6. KLONPRIM [Concomitant]
  7. ZEBUTAL [Concomitant]
  8. CALCIUM [Concomitant]

REACTIONS (7)
  - CONVULSION [None]
  - BLOOD PRESSURE INCREASED [None]
  - CARDIOMEGALY [None]
  - MUSCLE SPASMS [None]
  - DYSPHAGIA [None]
  - SKIN ODOUR ABNORMAL [None]
  - DRY MOUTH [None]
